FAERS Safety Report 5023498-7 (Version None)
Quarter: 2006Q2

REPORT INFORMATION
  Report Type: 
  Country: None (occurrence: None)
  Receive Date: 20060606
  Receipt Date: 20060523
  Transmission Date: 20061013
  Serious: Yes (Hospitalization)
  Sender: FDA-Public Use
  Company Number: 2006-01129

PATIENT
  Age: 66 Year
  Sex: Male
  Weight: 44 kg

DRUGS (3)
  1. VELCADE [Suspect]
     Indication: MULTIPLE MYELOMA
     Dosage: 1.87 MG, INTRAVENOUS
     Route: 042
     Dates: start: 20060508
  2. THALIDOMIDE (THALIDOMIDE) TABLET [Suspect]
     Indication: MULTIPLE MYELOMA
     Dosage: 100.00 MG, UNK; ORAL
     Route: 048
     Dates: start: 20060508
  3. DEXAMETHASONE [Suspect]
     Indication: MULTIPLE MYELOMA
     Dosage: 40.00 MG, UNK; INTRAVENOUS
     Route: 042
     Dates: start: 20060508

REACTIONS (3)
  - INSOMNIA [None]
  - MYOCLONUS [None]
  - UNEVALUABLE EVENT [None]
